FAERS Safety Report 22384354 (Version 1)
Quarter: 2023Q2

REPORT INFORMATION
  Report Type: Spontaneous
  Country: US (occurrence: None)
  Receive Date: 20230527
  Receipt Date: 20230527
  Transmission Date: 20230721
  Serious: Yes (Life-Threatening, Hospitalization)
  Sender: FDA-Public Use
  Company Number: None

PATIENT
  Age: 93 Year
  Sex: Male
  Weight: 60.3 kg

DRUGS (1)
  1. ZINPLAVA [Suspect]
     Active Substance: BEZLOTOXUMAB
     Dosage: OTHER FREQUENCY : ONCE;?
     Route: 041
     Dates: start: 20230425, end: 20230425

REACTIONS (6)
  - Mental status changes [None]
  - Encephalopathy [None]
  - Aphasia [None]
  - Diarrhoea [None]
  - Clostridium difficile infection [None]
  - Neurotoxicity [None]

NARRATIVE: CASE EVENT DATE: 20230508
